FAERS Safety Report 13909135 (Version 1)
Quarter: 2017Q3

REPORT INFORMATION
  Report Type: Report from Study
  Country: TW (occurrence: TW)
  Receive Date: 20170828
  Receipt Date: 20170828
  Transmission Date: 20171127
  Serious: Yes (Other)
  Sender: FDA-Public Use
  Company Number: TW-ROCHE-1978955

PATIENT

DRUGS (9)
  1. METHYLPREDNISOLONE. [Suspect]
     Active Substance: METHYLPREDNISOLONE
     Indication: PROPHYLAXIS AGAINST TRANSPLANT REJECTION
     Dosage: THEN FOLLOWED BY ANOTHER 3 DOSES (125 MG) EVERY 12 HOURS POSTOPERATIVELY
     Route: 042
  2. PREDNISOLONE. [Suspect]
     Active Substance: PREDNISOLONE
     Indication: PROPHYLAXIS AGAINST TRANSPLANT REJECTION
     Dosage: AND TAPERED BY 5 MG/DAY UNTIL IT REACHED THE MAINTENANCE DOSE OF 20 MG/DAY IN THE 1ST POST-HTX MONTH
     Route: 048
  3. SULFAMETHOXAZOLE/TRIMETHOPRIM [Suspect]
     Active Substance: SULFAMETHOXAZOLE\TRIMETHOPRIM
     Indication: PNEUMOCYSTIS JIROVECII PNEUMONIA
     Route: 048
  4. SULFAMETHOXAZOLE/TRIMETHOPRIM [Suspect]
     Active Substance: SULFAMETHOXAZOLE\TRIMETHOPRIM
     Indication: PNEUMOCYSTIS JIROVECII PNEUMONIA
     Route: 042
  5. VALGANCICLOVIR. [Concomitant]
     Active Substance: VALGANCICLOVIR
     Indication: PNEUMOCYSTIS JIROVECII PNEUMONIA
     Route: 065
  6. EVEROLIMUS [Suspect]
     Active Substance: EVEROLIMUS
     Indication: PROPHYLAXIS AGAINST TRANSPLANT REJECTION
     Route: 065
  7. MYCOPHENOLATE MOFETIL. [Suspect]
     Active Substance: MYCOPHENOLATE MOFETIL
     Indication: PROPHYLAXIS AGAINST TRANSPLANT REJECTION
     Dosage: ON POSTOPERATIVE DAY 1?THE DOSE WAS REDUCED BY 250 MG EVERY 3-6 MONTHS UNTIL IT REACHED 1250 MG/ DAY
     Route: 065
  8. SULFAMETHOXAZOLE/TRIMETHOPRIM [Concomitant]
     Active Substance: SULFAMETHOXAZOLE\TRIMETHOPRIM
     Indication: ANTIFUNGAL PROPHYLAXIS
     Dosage: UNTIL 6 MONTHS POST-HTX
     Route: 048
  9. TACROLIMUS. [Suspect]
     Active Substance: TACROLIMUS
     Indication: PROPHYLAXIS AGAINST TRANSPLANT REJECTION
     Dosage: INITIAL DOSE ?IT  WAS ADJUSTED UNTIL A SERUM LEVEL OF 10-15 NG/ML WAS REACHED IN THE FIRST MONTH, AN
     Route: 065

REACTIONS (9)
  - Pneumocystis jirovecii pneumonia [Recovering/Resolving]
  - Fungal infection [Unknown]
  - Infection [Unknown]
  - Bacterial infection [Unknown]
  - Acute kidney injury [Unknown]
  - Leukopenia [Unknown]
  - Viral infection [Unknown]
  - Lymphopenia [Unknown]
  - Renal impairment [Unknown]
